FAERS Safety Report 10247194 (Version 2)
Quarter: 2014Q2

REPORT INFORMATION
  Report Type: Spontaneous
  Country: US (occurrence: US)
  Receive Date: 20140619
  Receipt Date: 20140619
  Transmission Date: 20141212
  Serious: Yes (Hospitalization)
  Sender: FDA-Public Use
  Company Number: US-GLAXOSMITHKLINE-A0810652A

PATIENT
  Sex: Male

DRUGS (1)
  1. AVANDIA [Suspect]
     Indication: DIABETES MELLITUS
     Dosage: 4MG TWICE PER DAY
     Route: 048
     Dates: start: 20000510, end: 20070625

REACTIONS (8)
  - Cerebrovascular accident [Unknown]
  - Hemiplegia [Unknown]
  - VIIth nerve paralysis [Unknown]
  - Atrial fibrillation [Unknown]
  - Cardiac failure congestive [Unknown]
  - Cerebral infarction [Unknown]
  - Angina pectoris [Unknown]
  - Arteriosclerosis coronary artery [Unknown]
